FAERS Safety Report 5020581-7 (Version None)
Quarter: 2006Q2

REPORT INFORMATION
  Report Type: 
  Country: None (occurrence: None)
  Receive Date: 20060602
  Receipt Date: 20060524
  Transmission Date: 20061013
  Serious: Yes (Hospitalization, Other)
  Sender: FDA-Public Use
  Company Number: 232877K06USA

PATIENT
  Age: 27 Year
  Sex: Female

DRUGS (3)
  1. REBIF [Suspect]
     Indication: MULTIPLE SCLEROSIS
     Dosage: 44 MCG, 3 IN 1 WEEKS, SUBCUTANEOUS
     Route: 058
     Dates: start: 20051115
  2. CYMBALTA [Suspect]
     Dates: start: 20060118
  3. ULTRAM [Suspect]
     Dates: start: 20060118, end: 20060126

REACTIONS (10)
  - AMNESIA [None]
  - ANTICONVULSANT DRUG LEVEL DECREASED [None]
  - CONVULSIVE THRESHOLD LOWERED [None]
  - FACIAL BONES FRACTURE [None]
  - FALL [None]
  - GRAND MAL CONVULSION [None]
  - INJECTION SITE DISCOLOURATION [None]
  - INJECTION SITE MASS [None]
  - INJECTION SITE PAIN [None]
  - PLASMA VISCOSITY DECREASED [None]
